FAERS Safety Report 7867286-2 (Version None)
Quarter: 2011Q4

REPORT INFORMATION
  Report Type: 
  Country: None (occurrence: None)
  Receive Date: 20111028
  Receipt Date: 20111019
  Transmission Date: 20120403
  Serious: Yes (Other)
  Sender: FDA-Public Use
  Company Number: PHHY2011BR93681

PATIENT
  Sex: Male

DRUGS (3)
  1. QUETIAPINE FUMARATE [Concomitant]
  2. SIMVASTATIN [Concomitant]
     Dosage: UNK MG, UNK
  3. METFORMIN HCL [Suspect]
     Route: 048

REACTIONS (1)
  - CEREBROVASCULAR ACCIDENT [None]
